FAERS Safety Report 9063029 (Version 1)
Quarter: 2013Q1

REPORT INFORMATION
  Report Type: Report from Study
  Country: US (occurrence: US)
  Receive Date: 20130131
  Receipt Date: 20130131
  Transmission Date: 20140127
  Serious: No
  Sender: FDA-Public Use
  Company Number: US-ABBOTT-12P-163-0988707-00

PATIENT
  Age: 22 Year
  Sex: Female
  Weight: 45.4 kg

DRUGS (12)
  1. HUMIRA [Suspect]
     Indication: SPONDYLOARTHROPATHY
     Dosage: LOADING DOSE
     Dates: start: 20120926
  2. HUMIRA [Suspect]
     Indication: CROHN^S DISEASE
     Dates: start: 20121010
  3. HUMIRA [Suspect]
     Dates: start: 20121024
  4. GABAPENTIN [Concomitant]
     Indication: BACK PAIN
     Dosage: 2 AT BEDTIME
  5. ATENOLOL [Concomitant]
     Indication: TACHYCARDIA
     Dosage: 25MG DAILY
  6. OMEPRAZOLE [Concomitant]
     Indication: PRODUCT USED FOR UNKNOWN INDICATION
     Dosage: 20MG DAILY
  7. PREDNISONE [Concomitant]
     Indication: PRODUCT USED FOR UNKNOWN INDICATION
  8. HYDROCODONE [Concomitant]
     Indication: BACK PAIN
  9. PENTASA [Concomitant]
     Indication: PRODUCT USED FOR UNKNOWN INDICATION
  10. IRON [Concomitant]
     Indication: PRODUCT USED FOR UNKNOWN INDICATION
  11. NATURES CODE OTC [Concomitant]
     Indication: PRODUCT USED FOR UNKNOWN INDICATION
     Dosage: 1 PACKET/DAY
  12. TIZANIDINE [Concomitant]
     Indication: BACK PAIN

REACTIONS (3)
  - Off label use [Unknown]
  - Injection site pain [Recovered/Resolved]
  - Injection site pain [Recovered/Resolved]
